FAERS Safety Report 18520514 (Version 1)
Quarter: 2020Q4

REPORT INFORMATION
  Report Type: Spontaneous
  Country: US (occurrence: US)
  Receive Date: 20201119
  Receipt Date: 20201119
  Transmission Date: 20210114
  Serious: No
  Sender: FDA-Public Use
  Company Number: US-AUROBINDO-AUR-APL-2020-021993

PATIENT
  Age: 82 Year
  Sex: Female
  Weight: 56.68 kg

DRUGS (3)
  1. VITAMIN D [Concomitant]
     Active Substance: VITAMIN D NOS
     Indication: DRY AGE-RELATED MACULAR DEGENERATION
     Dosage: UNK
     Route: 065
  2. PANTOPRAZOLE SODIUM. [Suspect]
     Active Substance: PANTOPRAZOLE SODIUM
     Indication: ABDOMINAL DISCOMFORT
     Dosage: 1 DOSAGE FORM, DAILY, BEFORE EVENING MEAL
     Route: 065
  3. NITROFURANTOIN. [Suspect]
     Active Substance: NITROFURANTOIN
     Indication: CYSTITIS
     Dosage: UNK
     Route: 065

REACTIONS (4)
  - Nausea [Recovered/Resolved]
  - Diarrhoea [Recovered/Resolved]
  - Malaise [Recovered/Resolved]
  - Feeding disorder [Recovered/Resolved]

NARRATIVE: CASE EVENT DATE: 20200228
